FAERS Safety Report 6458570-8 (Version None)
Quarter: 2009Q4

REPORT INFORMATION
  Report Type: 
  Country: None (occurrence: None)
  Receive Date: 20091126
  Receipt Date: 20091113
  Transmission Date: 20100525
  Serious: Yes (Other)
  Sender: FDA-Public Use
  Company Number: JP-JNJFOC-20040800010

PATIENT
  Sex: Male
  Weight: 73 kg

DRUGS (27)
  1. LEUSTATIN [Suspect]
     Route: 041
  2. LEUSTATIN [Suspect]
     Indication: HAIRY CELL LEUKAEMIA
     Route: 041
  3. MEROPENEM [Concomitant]
     Indication: INFECTION
     Route: 040
  4. AMIKACIN SULFATE [Concomitant]
     Indication: INFECTION
     Route: 040
  5. ITRIZOLE [Concomitant]
     Route: 048
  6. ITRIZOLE [Concomitant]
     Indication: ANTIFUNGAL PROPHYLAXIS
     Route: 048
  7. SULFAMETHOXAZOLE AND TRIMETHOPRIM [Concomitant]
     Route: 048
  8. SULFAMETHOXAZOLE AND TRIMETHOPRIM [Concomitant]
     Indication: ANTIFUNGAL PROPHYLAXIS
     Route: 048
  9. RABEPRAZOLE SODIUM [Concomitant]
     Indication: PROPHYLAXIS AGAINST GASTROINTESTINAL ULCER
     Route: 048
  10. CONCENTRATED HUMAN RED BLOOD CELLS [Concomitant]
     Route: 041
  11. CONCENTRATED HUMAN RED BLOOD CELLS [Concomitant]
     Route: 041
  12. CONCENTRATED HUMAN RED BLOOD CELLS [Concomitant]
     Indication: ANAEMIA
     Route: 041
  13. LEVOFLOXACIN [Concomitant]
     Route: 048
  14. LEVOFLOXACIN [Concomitant]
     Indication: INFECTION PROPHYLAXIS
     Route: 048
  15. ALLOPURINOL [Concomitant]
     Indication: HYPERURICAEMIA
     Route: 048
  16. ROXATIDINE ACETATE HCL [Concomitant]
     Indication: PROPHYLAXIS
     Route: 048
  17. FILGRASTIM [Concomitant]
     Route: 058
  18. FILGRASTIM [Concomitant]
     Route: 058
  19. FILGRASTIM [Concomitant]
     Route: 058
  20. CEFEPIME HYDROCHLORIDE [Concomitant]
     Indication: INFECTION PROPHYLAXIS
     Route: 042
  21. URSO 250 [Concomitant]
     Indication: CHOLELITHIASIS
     Route: 048
  22. MARZULENE S [Concomitant]
     Indication: PROPHYLAXIS
     Route: 048
  23. PLATELETS [Concomitant]
     Route: 041
  24. PLATELETS [Concomitant]
     Route: 041
  25. PLATELETS [Concomitant]
     Route: 041
  26. PLATELETS [Concomitant]
     Route: 041
  27. PLATELETS [Concomitant]
     Route: 041

REACTIONS (12)
  - ANAEMIA [None]
  - BLOOD ALKALINE PHOSPHATASE INCREASED [None]
  - BLOOD CREATININE INCREASED [None]
  - BLOOD URIC ACID INCREASED [None]
  - DEEP VEIN THROMBOSIS [None]
  - GAMMA-GLUTAMYLTRANSFERASE INCREASED [None]
  - HERPES ZOSTER [None]
  - LYMPHOCYTE COUNT DECREASED [None]
  - NEUTROPENIA [None]
  - PLATELET COUNT DECREASED [None]
  - THROMBOCYTOPENIA [None]
  - WHITE BLOOD CELL COUNT DECREASED [None]
